FAERS Safety Report 8339538-3 (Version None)
Quarter: 2012Q2

REPORT INFORMATION
  Report Type: 
  Country: None (occurrence: None)
  Receive Date: 20120507
  Receipt Date: 20120430
  Transmission Date: 20120825
  Serious: Yes (Other)
  Sender: FDA-Public Use
  Company Number: PHHY2011BR17815

PATIENT
  Sex: Female

DRUGS (2)
  1. ADALAT [Concomitant]
  2. DIOVAN [Suspect]
     Indication: BLOOD PRESSURE ABNORMAL
     Dosage: 160 MG, BID

REACTIONS (3)
  - BLOOD PRESSURE INCREASED [None]
  - DRUG INEFFECTIVE [None]
  - ARRHYTHMIA [None]
